FAERS Safety Report 7412611-X (Version None)
Quarter: 2011Q2

REPORT INFORMATION
  Report Type: 
  Country: None (occurrence: None)
  Receive Date: 20110413
  Receipt Date: 20110406
  Transmission Date: 20111010
  Serious: Yes (Other)
  Sender: FDA-Public Use
  Company Number: B0487391A

PATIENT
  Sex: Female

DRUGS (3)
  1. NIQUITIN CQ CLEAR 21MG [Suspect]
     Indication: SMOKING CESSATION THERAPY
     Route: 062
  2. PHENOBARBITONE [Concomitant]
     Indication: EPILEPSY
  3. KEPPRA [Concomitant]
     Indication: EPILEPSY

REACTIONS (2)
  - MUSCLE TWITCHING [None]
  - EPILEPSY [None]
